FAERS Safety Report 12922416 (Version 1)
Quarter: 2016Q4

REPORT INFORMATION
  Report Type: Spontaneous
  Country: US (occurrence: US)
  Receive Date: 20161108
  Receipt Date: 20161108
  Transmission Date: 20170207
  Serious: Yes (Hospitalization)
  Sender: FDA-Public Use
  Company Number: None

PATIENT
  Age: 11 Year
  Sex: Male
  Weight: 34.1 kg

DRUGS (9)
  1. ONCASPAR [Suspect]
     Active Substance: PEGASPARGASE
     Dates: end: 20160927
  2. CYTARABINE. [Suspect]
     Active Substance: CYTARABINE
     Dates: end: 20160923
  3. MERCAPTOPURINE. [Suspect]
     Active Substance: MERCAPTOPURINE
     Dates: end: 20161031
  4. DAUNORUBICIN [Suspect]
     Active Substance: DAUNORUBICIN
     Dates: end: 20160720
  5. LORAZEPAM. [Concomitant]
     Active Substance: LORAZEPAM
  6. VINCRISTINE SULFATE. [Suspect]
     Active Substance: VINCRISTINE SULFATE
     Dates: end: 20161018
  7. METHOTREXATE. [Suspect]
     Active Substance: METHOTREXATE
     Dates: end: 20161018
  8. PREDNISONE. [Suspect]
     Active Substance: PREDNISONE
     Dates: end: 20160726
  9. CYCLOPHOSPHAMIDE. [Suspect]
     Active Substance: CYCLOPHOSPHAMIDE
     Dates: end: 20160913

REACTIONS (5)
  - Hypophagia [None]
  - Incorrect dose administered [None]
  - Drug level changed [None]
  - Transaminases increased [None]
  - Fluid intake reduced [None]

NARRATIVE: CASE EVENT DATE: 20161101
